FAERS Safety Report 12377514 (Version 1)
Quarter: 2016Q2

REPORT INFORMATION
  Report Type: Spontaneous
  Country: US (occurrence: US)
  Receive Date: 20160517
  Receipt Date: 20160517
  Transmission Date: 20160815
  Serious: No
  Sender: FDA-Public Use
  Company Number: US-JNJFOC-20160417936

PATIENT
  Age: 24 Month
  Sex: Female
  Weight: 12.7 kg

DRUGS (3)
  1. CHILDRENS MOTRIN [Suspect]
     Active Substance: IBUPROFEN
     Indication: INFLUENZA
     Dosage: 1/2 TEASPOON ONCE
     Route: 048
     Dates: start: 20160418
  2. CHILDRENS MOTRIN [Suspect]
     Active Substance: IBUPROFEN
     Indication: PYREXIA
     Dosage: 1/2 TEASPOON ONCE
     Route: 048
     Dates: start: 20160418
  3. CHILDRENS MOTRIN [Suspect]
     Active Substance: IBUPROFEN
     Indication: COUGH
     Dosage: 1/2 TEASPOON ONCE
     Route: 048
     Dates: start: 20160418

REACTIONS (2)
  - Wrong technique in product usage process [Unknown]
  - Incorrect dose administered [Unknown]
